FAERS Safety Report 11679910 (Version 2)
Quarter: 2015Q4

REPORT INFORMATION
  Report Type: Spontaneous
  Country: US (occurrence: US)
  Receive Date: 20151027
  Receipt Date: 20151104
  Transmission Date: 20160304
  Serious: No
  Sender: FDA-Public Use
  Company Number: US-ELI_LILLY_AND_COMPANY-US201008001947

PATIENT
  Age: 76 Year
  Sex: Female

DRUGS (1)
  1. FORTEO [Suspect]
     Active Substance: TERIPARATIDE
     Indication: OSTEOPOROSIS
     Route: 065

REACTIONS (7)
  - Sinusitis [Unknown]
  - Cataract [Unknown]
  - Aphonia [Unknown]
  - Injection site pain [Unknown]
  - Mass [Unknown]
  - Pigmentation disorder [Not Recovered/Not Resolved]
  - Malaise [Unknown]
